FAERS Safety Report 7610002-X (Version None)
Quarter: 2011Q3

REPORT INFORMATION
  Report Type: 
  Country: None (occurrence: None)
  Receive Date: 20110714
  Receipt Date: 20110705
  Transmission Date: 20111222
  Serious: Yes (Other)
  Sender: FDA-Public Use
  Company Number: IT-ASTRAZENECA-2011SE40195

PATIENT
  Age: 31466 Day
  Sex: Male

DRUGS (2)
  1. ZESTRIL [Suspect]
     Route: 048
     Dates: start: 20100515, end: 20110514
  2. MINITRAN [Concomitant]
     Route: 062

REACTIONS (2)
  - DEHYDRATION [None]
  - RENAL FAILURE [None]
